FAERS Safety Report 18801771 (Version 1)
Quarter: 2021Q1

REPORT INFORMATION
  Report Type: Spontaneous
  Country: US (occurrence: US)
  Receive Date: 20210128
  Receipt Date: 20210128
  Transmission Date: 20210419
  Serious: No
  Sender: FDA-Public Use
  Company Number: US-DRREDDYS-USA/USA/21/0130915

PATIENT
  Sex: Male

DRUGS (1)
  1. SEVELAMER CARBONATE TABLETS, 800 MG [Suspect]
     Active Substance: SEVELAMER CARBONATE
     Indication: PRODUCT USED FOR UNKNOWN INDICATION
     Dosage: 1 TABLET 3 TIMES A DAY WITH A MEAL AND 1 TABLET WITH A SNACK, MAX 4 TABLETS A DAY
     Route: 048
     Dates: start: 20200107

REACTIONS (3)
  - Product size issue [Unknown]
  - Product use complaint [Unknown]
  - Product dose omission issue [Unknown]

NARRATIVE: CASE EVENT DATE: 20200107
